FAERS Safety Report 20236535 (Version 1)
Quarter: 2021Q4

REPORT INFORMATION
  Report Type: Spontaneous
  Country: BR (occurrence: BR)
  Receive Date: 20211228
  Receipt Date: 20211228
  Transmission Date: 20220303
  Serious: Yes (Other)
  Sender: FDA-Public Use
  Company Number: BR-SA-SAC20210506000231

PATIENT
  Age: 33 Year
  Sex: Female
  Weight: 63.6 kg

DRUGS (8)
  1. ENOXAPARIN SODIUM [Suspect]
     Active Substance: ENOXAPARIN SODIUM
     Indication: Hypercoagulation
     Dosage: UNK UNK, QD
     Route: 065
     Dates: start: 20210320
  2. DUPHASTON [Concomitant]
     Active Substance: DYDROGESTERONE
  3. METICORTEN [Concomitant]
     Active Substance: PREDNISONE
  4. PRIMOGYNA [Concomitant]
  5. OMEGAFOLIN [Concomitant]
  6. ESTRADIOL [Concomitant]
     Active Substance: ESTRADIOL
  7. MINERALS\VITAMINS [Concomitant]
     Active Substance: MINERALS\VITAMINS
  8. UTROGESTAN [Concomitant]
     Active Substance: PROGESTERONE

REACTIONS (6)
  - Gestational trophoblastic detachment [Unknown]
  - Placenta praevia [Unknown]
  - Haemorrhage [Unknown]
  - Vaginal haemorrhage [Recovering/Resolving]
  - Maternal exposure during pregnancy [Unknown]
  - Product use in unapproved indication [Unknown]

NARRATIVE: CASE EVENT DATE: 20210320
